FAERS Safety Report 11225600 (Version 5)
Quarter: 2018Q2

REPORT INFORMATION
  Report Type: Spontaneous
  Country: US (occurrence: US)
  Receive Date: 20150629
  Receipt Date: 20180403
  Transmission Date: 20180711
  Serious: No
  Sender: FDA-Public Use
  Company Number: US-PFIZER INC-2015211671

PATIENT
  Age: 51 Year
  Sex: Female

DRUGS (4)
  1. LYRICA [Suspect]
     Active Substance: PREGABALIN
     Indication: PROCEDURAL PAIN
     Dosage: UNK
  2. LYRICA [Suspect]
     Active Substance: PREGABALIN
     Indication: PAIN
     Dosage: 75 MG, UNK
  3. LYRICA [Suspect]
     Active Substance: PREGABALIN
     Indication: COMPLEX REGIONAL PAIN SYNDROME
  4. LYRICA [Suspect]
     Active Substance: PREGABALIN
     Indication: NECK PAIN
     Dosage: 150 MG, UNK

REACTIONS (4)
  - Dizziness postural [Recovered/Resolved]
  - Dizziness [Recovered/Resolved]
  - Paraesthesia [Unknown]
  - Bronchitis [Unknown]
